FAERS Safety Report 9996178 (Version 1)
Quarter: 2014Q1

REPORT INFORMATION
  Report Type: Spontaneous
  Country: US (occurrence: None)
  Receive Date: 20140218
  Receipt Date: 20140218
  Transmission Date: 20141002
  Serious: Yes (Other)
  Sender: FDA-Public Use
  Company Number: 1000050575

PATIENT
  Age: 27 Year
  Sex: Female

DRUGS (5)
  1. VIIBRYD [Suspect]
     Indication: DEPRESSION
     Dosage: 10 MG (10 MG, 1 IN 1 D), ORAL
     Route: 048
     Dates: start: 20131024
  2. NALTREXONE (NALTREXONE) (NALTRESONE) [Concomitant]
  3. DIAZEPAM (DIAZEPAM) (DIAZEPAM) [Concomitant]
  4. ADDERALL (AMPHETAMINE, DEXTROAMPHETAMINE) (AMPHETAMINE, DEXTROAMPHETAMINE)? [Concomitant]
  5. BIRTH CONTROL PILL (NOS) (BIRTH CONTROL PILL (NOS)) (BIRTH CONTROL PILL (NOS)) [Concomitant]

REACTIONS (3)
  - Insomnia [None]
  - Heart rate increased [None]
  - Diarrhoea [None]
